FAERS Safety Report 10354427 (Version 1)
Quarter: 2014Q3

REPORT INFORMATION
  Report Type: Spontaneous
  Country: US (occurrence: US)
  Receive Date: 20140731
  Receipt Date: 20140731
  Transmission Date: 20150326
  Serious: Yes (Other)
  Sender: FDA-Public Use
  Company Number: US-PFIZER INC-2014208953

PATIENT
  Age: 92 Year
  Sex: Female
  Weight: 59.86 kg

DRUGS (6)
  1. ECOTRIN [Concomitant]
     Active Substance: ASPIRIN
     Dosage: UNK
  2. HYDROCHLOROTHIAZIDE. [Concomitant]
     Active Substance: HYDROCHLOROTHIAZIDE
     Dosage: UNK
  3. NAMENDA [Concomitant]
     Active Substance: MEMANTINE HYDROCHLORIDE
     Dosage: UNK
  4. PREMARIN [Suspect]
     Active Substance: ESTROGENS, CONJUGATED
     Dosage: UNK,1X/DAY
     Route: 048
     Dates: start: 1994
  5. DESIPRAMINE [Concomitant]
     Active Substance: DESIPRAMINE
     Dosage: UNK, AS NEEDED
  6. COLCRYS [Concomitant]
     Active Substance: COLCHICINE
     Indication: GASTROINTESTINAL DISORDER
     Dosage: UNK, AS NEEDED

REACTIONS (15)
  - Gallbladder disorder [Unknown]
  - Breast disorder [Unknown]
  - Headache [Unknown]
  - Dyspepsia [Unknown]
  - Breast swelling [Unknown]
  - Nausea [Unknown]
  - Abdominal pain upper [Unknown]
  - Pain in extremity [Unknown]
  - Herpes zoster [Unknown]
  - Hypertension [Unknown]
  - Weight increased [Unknown]
  - Abdominal distension [Unknown]
  - Dementia [Unknown]
  - Vomiting [Unknown]
  - Abdominal pain [Unknown]
